FAERS Safety Report 9367008 (Version 3)
Quarter: 2013Q4

REPORT INFORMATION
  Report Type: Spontaneous
  Country: US (occurrence: US)
  Receive Date: 20130625
  Receipt Date: 20131101
  Transmission Date: 20140711
  Serious: Yes (Hospitalization, Other)
  Sender: FDA-Public Use
  Company Number: US-BAYER-2013-078040

PATIENT
  Age: 39 Year
  Sex: Female

DRUGS (26)
  1. OCELLA [Suspect]
     Dosage: UNK
     Dates: start: 20120108, end: 20120907
  2. LORAZEPAM [Concomitant]
     Indication: ANXIETY
     Dosage: 0.5 MG, UNK
     Dates: start: 20120608
  3. PERCOCET [Concomitant]
     Dosage: UNK
     Dates: start: 20120608
  4. LEVOTHROID [Concomitant]
     Dosage: 100 MCGUNK
  5. LEVOTHYROXINE [Concomitant]
     Dosage: 112 MCG
  6. DENAVIR [Concomitant]
     Dosage: 1 %, UNK
  7. ALBUTEROL [Concomitant]
  8. VENTOLIN [Concomitant]
  9. ALLEGRA [Concomitant]
     Dosage: 180 MG, UNK
  10. FLONASE [Concomitant]
     Indication: MULTIPLE ALLERGIES
     Dosage: 50 MCG
  11. FLUTICASONE [Concomitant]
     Dosage: 50 MCG
  12. FAMVIR [FAMCICLOVIR] [Concomitant]
     Dosage: 500 MG, UNK
  13. VITAMIN D [Concomitant]
     Dosage: 1000 U, UNK
  14. VITAMIN D [Concomitant]
     Dosage: 2000 IU, DAILY
  15. BENADRYL [Concomitant]
     Indication: URTICARIA
     Dosage: UNK
     Dates: start: 20120714
  16. PREDNISONE [Concomitant]
     Indication: URTICARIA
     Dosage: 5 MG, UNK
  17. CEPHALEXIN [Concomitant]
  18. TOPICORT [Concomitant]
  19. HYDROXYZINE [Concomitant]
     Indication: PRURITUS
     Dosage: 25 MG, UNK
  20. RANITIDINE [Concomitant]
     Indication: URTICARIA
     Dosage: 300 MG, UNK
     Dates: start: 20120803
  21. ZOVIRAX [Concomitant]
     Dosage: 5 %, UNK
  22. MOMETASONE [Concomitant]
     Dosage: 0.1 %, UNK
  23. ZYRTEC [Concomitant]
     Indication: URTICARIA
     Dosage: 10 MG, DAILY
     Dates: start: 20120803
  24. AUGMENTIN [Concomitant]
     Indication: EAR PAIN
  25. IBUPROFEN [Concomitant]
     Dosage: INFREQUENTLY
  26. SYNTHROID [Concomitant]
     Indication: HYPOTHYROIDISM
     Dosage: UNK
     Dates: start: 2006

REACTIONS (14)
  - Pulmonary embolism [None]
  - Deep vein thrombosis [Recovered/Resolved]
  - Injury [Recovered/Resolved]
  - Pain in extremity [Recovered/Resolved]
  - Local swelling [Recovered/Resolved]
  - Respiratory arrest [None]
  - Haematoma [None]
  - Injection site bruising [None]
  - Injection site pain [None]
  - Overdose [None]
  - Faecaloma [None]
  - Muscle atrophy [None]
  - Stress [None]
  - Anxiety [None]
